FAERS Safety Report 11148470 (Version 1)
Quarter: 2015Q2

REPORT INFORMATION
  Report Type: Spontaneous
  Country: US (occurrence: None)
  Receive Date: 20150528
  Receipt Date: 20150528
  Transmission Date: 20150821
  Serious: Yes (Other)
  Sender: FDA-Public Use
  Company Number: None

PATIENT
  Age: 56 Year
  Sex: Female
  Weight: 72.58 kg

DRUGS (9)
  1. LODINE [Concomitant]
     Active Substance: ETODOLAC
  2. BIOTIN [Concomitant]
     Active Substance: BIOTIN
  3. ESTRADIOL. [Concomitant]
     Active Substance: ESTRADIOL
  4. FOLIC ACID. [Concomitant]
     Active Substance: FOLIC ACID
  5. CALCIUM WITH VIT D [Concomitant]
  6. MULTI VITAMIN [Concomitant]
     Active Substance: VITAMINS
  7. ZYRTEC [Concomitant]
     Active Substance: CETIRIZINE HYDROCHLORIDE
  8. SIMPONI [Suspect]
     Active Substance: GOLIMUMAB
     Indication: RHEUMATOID ARTHRITIS
     Route: 058
  9. METHOTREXATE [Concomitant]
     Active Substance: METHOTREXATE

REACTIONS (3)
  - Teeth brittle [None]
  - Artificial crown procedure [None]
  - Tooth fracture [None]

NARRATIVE: CASE EVENT DATE: 20150527
